FAERS Safety Report 24772999 (Version 2)
Quarter: 2025Q1

REPORT INFORMATION
  Report Type: Report from Study
  Country: US (occurrence: US)
  Receive Date: 20241225
  Receipt Date: 20250125
  Transmission Date: 20250409
  Serious: Yes (Hospitalization)
  Sender: ABBVIE
  Company Number: US-ABBVIE-6061135

PATIENT
  Age: 74 Year
  Sex: Female

DRUGS (2)
  1. VENCLEXTA [Suspect]
     Active Substance: VENETOCLAX
     Indication: Acute myeloid leukaemia
     Dosage: STOP DATE: 2024
     Route: 048
     Dates: start: 202410
  2. VENCLEXTA [Suspect]
     Active Substance: VENETOCLAX
     Indication: Acute myeloid leukaemia
     Dosage: DOSE REDUCED TO ONE TABLET?START DATE: 2024
     Route: 048
     Dates: end: 20250114

REACTIONS (5)
  - Fall [Not Recovered/Not Resolved]
  - Vitamin B12 decreased [Recovering/Resolving]
  - Head injury [Unknown]
  - Tremor [Unknown]
  - Balance disorder [Unknown]

NARRATIVE: CASE EVENT DATE: 20240101
